FAERS Safety Report 7358826-0 (Version None)
Quarter: 2011Q1

REPORT INFORMATION
  Report Type: 
  Country: None (occurrence: None)
  Receive Date: 20110317
  Receipt Date: 20110309
  Transmission Date: 20110831
  Serious: Yes (Hospitalization)
  Sender: FDA-Public Use
  Company Number: B0655237A

PATIENT
  Age: 54 Year
  Sex: Male
  Weight: 116 kg

DRUGS (9)
  1. CLOPIDOGREL [Concomitant]
     Indication: THROMBOSIS PROPHYLAXIS
     Route: 048
  2. MARAVIROC [Suspect]
     Dosage: 150MG TWICE PER DAY
     Route: 048
     Dates: start: 20090204
  3. PRAVASTATIN [Concomitant]
     Route: 048
  4. DARUNAVIR [Concomitant]
     Dosage: 600MG TWICE PER DAY
     Dates: start: 20090204
  5. RITONAVIR [Concomitant]
     Dosage: 100MG TWICE PER DAY
     Dates: start: 20090204
  6. ASPIRIN [Concomitant]
     Indication: PROPHYLAXIS
     Route: 048
  7. LOPRESSOR [Concomitant]
     Indication: HYPERTENSION
     Route: 048
  8. LISINOPRIL [Concomitant]
     Indication: HYPERTENSION
     Route: 048
  9. ETRAVIRINE [Concomitant]
     Dosage: 200MG TWICE PER DAY
     Dates: start: 20090204

REACTIONS (2)
  - MYOCARDIAL INFARCTION [None]
  - HOSPITALISATION [None]
